FAERS Safety Report 5118834-7 (Version None)
Quarter: 2006Q3

REPORT INFORMATION
  Report Type: 
  Country: None (occurrence: None)
  Receive Date: 20060801
  Receipt Date: 20060501
  Transmission Date: 20061208
  Serious: Yes (Other)
  Sender: FDA-Public Use
  Company Number: 446617

PATIENT
  Sex: Female

DRUGS (2)
  1. BONIVA [Suspect]
     Indication: DRUG USE FOR UNKNOWN INDICATION
     Dosage: INTRAVENOUS
     Route: 042
     Dates: start: 20060330
  2. BONIVA [Suspect]
     Indication: DRUG USE FOR UNKNOWN INDICATION
     Dosage: ORAL
     Route: 048
     Dates: start: 20060215

REACTIONS (4)
  - ARTHRALGIA [None]
  - INFLUENZA LIKE ILLNESS [None]
  - INSOMNIA [None]
  - MYALGIA [None]
